FAERS Safety Report 20344670 (Version 2)
Quarter: 2022Q1

REPORT INFORMATION
  Report Type: Spontaneous
  Country: US (occurrence: None)
  Receive Date: 20220118
  Receipt Date: 20220221
  Transmission Date: 20220423
  Serious: No
  Sender: FDA-Public Use
  Company Number: 2022A013054

PATIENT
  Age: 28301 Day
  Sex: Female
  Weight: 48.5 kg

DRUGS (1)
  1. BUDESONIDE\FORMOTEROL\GLYCOPYRRONIUM [Suspect]
     Active Substance: BUDESONIDE\FORMOTEROL\GLYCOPYRRONIUM
     Indication: Chronic obstructive pulmonary disease
     Dosage: BREZTRI AEROSPHERE 160/9/4.8MCG 2 PUFFS TWICE DAILY
     Route: 055
     Dates: start: 202107

REACTIONS (5)
  - Dyspnoea [Recovering/Resolving]
  - Product dose omission issue [Not Recovered/Not Resolved]
  - Device use issue [Recovered/Resolved]
  - Incorrect dose administered by device [Recovered/Resolved]
  - Device malfunction [Unknown]

NARRATIVE: CASE EVENT DATE: 20220106
